FAERS Safety Report 7641170-1 (Version None)
Quarter: 2011Q3

REPORT INFORMATION
  Report Type: 
  Country: None (occurrence: None)
  Receive Date: 20110728
  Receipt Date: 20110719
  Transmission Date: 20111222
  Serious: Yes (Other)
  Sender: FDA-Public Use
  Company Number: US-JNJFOC-20110708264

PATIENT
  Sex: Male

DRUGS (6)
  1. FOLIC ACID [Concomitant]
  2. ASACOL [Concomitant]
  3. PREDNISONE [Concomitant]
  4. REMICADE [Suspect]
     Indication: COLITIS ULCERATIVE
     Route: 042
     Dates: start: 20090601
  5. SOLU-MEDROL [Concomitant]
     Indication: PREMEDICATION
  6. REMICADE [Suspect]
     Route: 042
     Dates: start: 20110501, end: 20110718

REACTIONS (1)
  - RED MAN SYNDROME [None]
